FAERS Safety Report 7574297-3 (Version None)
Quarter: 2011Q2

REPORT INFORMATION
  Report Type: 
  Country: None (occurrence: None)
  Receive Date: 20110627
  Receipt Date: 20110522
  Transmission Date: 20111010
  Serious: No
  Sender: FDA-Public Use
  Company Number: US-BAYER-2011-044849

PATIENT

DRUGS (1)
  1. ALEVE (CAPLET) [Suspect]
     Dosage: COUNT SIZE NOT SPECIFIED
     Route: 048
     Dates: start: 20110501, end: 20110501

REACTIONS (4)
  - LIP SWELLING [None]
  - LIP INJURY [None]
  - CHAPPED LIPS [None]
  - HYPOAESTHESIA ORAL [None]
